FAERS Safety Report 5124949-X (Version None)
Quarter: 2006Q4

REPORT INFORMATION
  Report Type: 
  Country: None (occurrence: None)
  Receive Date: 20061011
  Receipt Date: 20061004
  Transmission Date: 20070319
  Serious: Yes (Hospitalization)
  Sender: FDA-Public Use
  Company Number: GB-BRISTOL-MYERS SQUIBB COMPANY-13530548

PATIENT
  Age: 76 Year
  Sex: Male
  Weight: 82 kg

DRUGS (6)
  1. CARBOPLATIN [Suspect]
     Indication: LUNG NEOPLASM MALIGNANT
     Route: 042
     Dates: start: 20060908, end: 20060908
  2. PACLITAXEL [Suspect]
     Indication: LUNG NEOPLASM MALIGNANT
     Route: 042
     Dates: start: 20060908, end: 20060908
  3. BENDROFLUMETHIAZIDE [Concomitant]
  4. PERINDOPRIL ERBUMINE [Concomitant]
  5. ATORVASTATIN CALCIUM [Concomitant]
  6. BEZAFIBRATE [Concomitant]

REACTIONS (2)
  - NEUTROPENIA [None]
  - URINARY RETENTION [None]
